FAERS Safety Report 9508878 (Version 1)
Quarter: 2013Q3

REPORT INFORMATION
  Report Type: Spontaneous
  Country: US (occurrence: US)
  Receive Date: 20130909
  Receipt Date: 20130909
  Transmission Date: 20140515
  Serious: Yes (Other)
  Sender: FDA-Public Use
  Company Number: US-BRISTOL-MYERS SQUIBB COMPANY-18951533

PATIENT
  Age: 37 Year
  Sex: Female

DRUGS (5)
  1. ABILIFY INJECTION [Suspect]
     Indication: SCHIZOPHRENIA
     Dosage: ABILIFY MAINTENA INJ
     Route: 065
     Dates: start: 20130412
  2. INSULIN [Concomitant]
     Dosage: INJ
  3. LYRICA [Concomitant]
  4. DILANTIN [Concomitant]
  5. LAMICTAL [Concomitant]

REACTIONS (2)
  - Convulsion [Unknown]
  - Injection site erythema [Unknown]
